FAERS Safety Report 18037918 (Version 3)
Quarter: 2020Q4

REPORT INFORMATION
  Report Type: Spontaneous
  Country: JP (occurrence: JP)
  Receive Date: 20200717
  Receipt Date: 20201015
  Transmission Date: 20210113
  Serious: Yes (Death)
  Sender: FDA-Public Use
  Company Number: JP-IPSEN BIOPHARMACEUTICALS, INC.-2020-12358

PATIENT
  Age: 67 Year
  Sex: Male

DRUGS (3)
  1. 5-FU [Concomitant]
     Active Substance: FLUOROURACIL
     Indication: PANCREATIC CARCINOMA
     Dates: start: 20200625, end: 20200625
  2. LEVOFOLINATE [Concomitant]
     Active Substance: LEVOLEUCOVORIN CALCIUM
     Indication: PANCREATIC CARCINOMA
     Dates: start: 20200625, end: 20200625
  3. ONIVYDE [Suspect]
     Active Substance: IRINOTECAN HYDROCHLORIDE
     Indication: PANCREATIC CARCINOMA
     Dosage: 50 MG/M2
     Route: 042
     Dates: start: 20200625, end: 20200625

REACTIONS (2)
  - Malignant neoplasm progression [Fatal]
  - Dyspnoea [Fatal]

NARRATIVE: CASE EVENT DATE: 202005
